FAERS Safety Report 14677238 (Version 2)
Quarter: 2018Q2

REPORT INFORMATION
  Report Type: Spontaneous
  Country: IT (occurrence: IT)
  Receive Date: 20180324
  Receipt Date: 20180404
  Transmission Date: 20180711
  Serious: Yes (Other)
  Sender: FDA-Public Use
  Company Number: IT-TEVA-2018-IT-870761

PATIENT
  Age: 63 Year
  Sex: Male

DRUGS (4)
  1. OXALIPLATINO TEVA [Suspect]
     Active Substance: OXALIPLATIN
     Indication: RECTAL CANCER RECURRENT
     Route: 042
     Dates: start: 20171206, end: 20180111
  2. DESAMETASONE FOSFATO HOSPIRA 4 MG/ML SOLUZIONE INIETTABILE [Concomitant]
     Indication: ALLERGY PROPHYLAXIS
     Route: 042
     Dates: start: 20180111, end: 20180111
  3. SAMYR 400 MG/5ML POLVERE E SOLVENTE PER SOLUZIONE INIETTABILE [Concomitant]
     Indication: PREMEDICATION
     Dates: start: 20180111, end: 20180111
  4. GRANISETRON KABI 1 MG/ML SOLUZIONE INIETTABILE [Concomitant]
     Indication: PROPHYLAXIS OF NAUSEA AND VOMITING
     Route: 042
     Dates: start: 20180111, end: 20180111

REACTIONS (4)
  - Lip oedema [Recovered/Resolved]
  - Malaise [Recovered/Resolved]
  - Hyperhidrosis [Recovered/Resolved]
  - Flushing [Recovered/Resolved]

NARRATIVE: CASE EVENT DATE: 20180111
